FAERS Safety Report 25361800 (Version 2)
Quarter: 2025Q2

REPORT INFORMATION
  Report Type: Spontaneous
  Country: US (occurrence: US)
  Receive Date: 20250527
  Receipt Date: 20250602
  Transmission Date: 20250717
  Serious: Yes (Hospitalization, Other)
  Sender: DR REDDYS
  Company Number: US-MLMSERVICE-20250513-PI502769-00145-1

PATIENT
  Sex: Female

DRUGS (2)
  1. METHAMPHETAMINE [Suspect]
     Active Substance: METHAMPHETAMINE
     Indication: Product used for unknown indication
  2. FENTANYL [Suspect]
     Active Substance: FENTANYL
     Indication: Product used for unknown indication
     Dosage: CONTINUED TO USE FENTANYL DAILY, MULTIPLE TIMES THROUGHOUT EACH DAY

REACTIONS (6)
  - Drug use disorder [Recovering/Resolving]
  - Mydriasis [Recovering/Resolving]
  - Hyperhidrosis [Recovering/Resolving]
  - Irritability [Recovering/Resolving]
  - Drug withdrawal syndrome [Recovering/Resolving]
  - Substance abuse [Unknown]
